FAERS Safety Report 23246005 (Version 1)
Quarter: 2023Q4

REPORT INFORMATION
  Report Type: Spontaneous
  Country: US (occurrence: US)
  Receive Date: 20231130
  Receipt Date: 20231130
  Transmission Date: 20240110
  Serious: No
  Sender: FDA-Public Use
  Company Number: US-SA-2020SA056638

PATIENT
  Age: 62 Year
  Sex: Male
  Weight: 83.9 kg

DRUGS (4)
  1. ASCORBIC ACID [Suspect]
     Active Substance: ASCORBIC ACID
     Indication: Product used for unknown indication
     Dosage: DOSE DESCRIPTION : UNK
     Route: 065
     Dates: end: 2022
  2. CERDELGA [Suspect]
     Active Substance: ELIGLUSTAT
     Indication: Gaucher^s disease
     Dosage: DOSE DESCRIPTION : 84 MG, QD
     Route: 048
     Dates: end: 202202
  3. CERDELGA [Suspect]
     Active Substance: ELIGLUSTAT
     Dosage: DOSE DESCRIPTION : 84 MG, QD
     Route: 048
  4. CERDELGA [Suspect]
     Active Substance: ELIGLUSTAT
     Dosage: DOSE DESCRIPTION : 84 MG, QD
     Route: 048
     Dates: start: 20190819

REACTIONS (5)
  - COVID-19 [Unknown]
  - Bone pain [Unknown]
  - Diarrhoea [Unknown]
  - Weight decreased [Unknown]
  - Illness [Unknown]

NARRATIVE: CASE EVENT DATE: 20191201
